FAERS Safety Report 7519412-2 (Version None)
Quarter: 2011Q2

REPORT INFORMATION
  Report Type: 
  Country: None (occurrence: None)
  Receive Date: 20110602
  Receipt Date: 20110525
  Transmission Date: 20111010
  Serious: Yes (Other)
  Sender: FDA-Public Use
  Company Number: US-ABBOTT-11P-163-0728648-00

PATIENT
  Sex: Female

DRUGS (2)
  1. ACTIVELLA [Concomitant]
     Indication: PROPHYLAXIS
     Dates: start: 20110101
  2. LUPRON DEPOT [Suspect]
     Indication: ENDOMETRIOSIS
     Dates: start: 20110201

REACTIONS (5)
  - HYPOAESTHESIA [None]
  - CHEST PAIN [None]
  - BACK PAIN [None]
  - HYPOAESTHESIA FACIAL [None]
  - PALPITATIONS [None]
